FAERS Safety Report 25027785 (Version 1)
Quarter: 2025Q1

REPORT INFORMATION
  Report Type: Spontaneous
  Country: US (occurrence: US)
  Receive Date: 20250301
  Receipt Date: 20250301
  Transmission Date: 20250408
  Serious: No
  Sender: SANOFI AVENTIS
  Company Number: US-SA-2025SA059930

PATIENT
  Age: 20 Year
  Sex: Male

DRUGS (1)
  1. KEVZARA [Suspect]
     Active Substance: SARILUMAB
     Indication: Rheumatoid arthritis
     Dosage: 200 MG, QOW
     Route: 058
     Dates: start: 20250119

REACTIONS (4)
  - Injection site rash [Unknown]
  - Peripheral swelling [Recovering/Resolving]
  - Rash pruritic [Unknown]
  - Skin burning sensation [Unknown]
